FAERS Safety Report 15318969 (Version 1)
Quarter: 2018Q3

REPORT INFORMATION
  Report Type: Spontaneous
  Country: US (occurrence: US)
  Receive Date: 20180820
  Receipt Date: 20180820
  Transmission Date: 20181010
  Serious: Yes (Disabling)
  Sender: FDA-Public Use
  Company Number: None

PATIENT
  Age: 53 Year
  Sex: Female
  Weight: 86.4 kg

DRUGS (11)
  1. FIRAZYR [Concomitant]
     Active Substance: ICATIBANT ACETATE
  2. NORVASC [Concomitant]
     Active Substance: AMLODIPINE BESYLATE
  3. CINRYZE [Concomitant]
     Active Substance: HUMAN C1-ESTERASE INHIBITOR
  4. MUCINEX [Concomitant]
     Active Substance: GUAIFENESIN
  5. OCTAGAM IMMUNE GLOBULIN (HUMAN) [Concomitant]
     Active Substance: HUMAN IMMUNOGLOBULIN G
  6. ZOLPIDEM [Concomitant]
     Active Substance: ZOLPIDEM\ZOLPIDEM TARTRATE
  7. VERAPAMIL [Concomitant]
     Active Substance: VERAPAMIL HYDROCHLORIDE
  8. VITAMIN D [Concomitant]
     Active Substance: CHOLECALCIFEROL
  9. MAG OX [Concomitant]
     Active Substance: MAGNESIUM OXIDE
  10. HYALURONIC ACID [Concomitant]
     Active Substance: HYALURONIC ACID
  11. CIPRODEX [Suspect]
     Active Substance: CIPROFLOXACIN HYDROCHLORIDE\DEXAMETHASONE
     Indication: EAR INFECTION
     Route: 001

REACTIONS (3)
  - Deafness unilateral [None]
  - Tendonitis [None]
  - Nerve injury [None]

NARRATIVE: CASE EVENT DATE: 20180102
